FAERS Safety Report 4903858-2 (Version None)
Quarter: 2006Q1

REPORT INFORMATION
  Report Type: 
  Country: None (occurrence: None)
  Receive Date: 20060208
  Receipt Date: 20050715
  Transmission Date: 20060701
  Serious: Yes (Other)
  Sender: FDA-Public Use
  Company Number: US-GLAXOSMITHKLINE-A0566453A

PATIENT
  Age: 18 Year
  Sex: Female

DRUGS (4)
  1. PAXIL [Suspect]
     Dosage: 60MG PER DAY
     Route: 048
  2. LITHIUM [Concomitant]
  3. PRILOSEC [Concomitant]
  4. UNSPECIFIED MEDICATION [Concomitant]

REACTIONS (3)
  - DIZZINESS [None]
  - VOMITING [None]
  - WEIGHT INCREASED [None]
